FAERS Safety Report 20355540 (Version 3)
Quarter: 2022Q1

REPORT INFORMATION
  Report Type: Report from Study
  Country: SK (occurrence: SK)
  Receive Date: 20220120
  Receipt Date: 20220225
  Transmission Date: 20220423
  Serious: Yes (Hospitalization)
  Sender: FDA-Public Use
  Company Number: SK-NOVARTISPH-NVSC2022SK005173

PATIENT
  Age: 30 Year
  Sex: Female
  Weight: 91.7 kg

DRUGS (13)
  1. SECUKINUMAB [Suspect]
     Active Substance: SECUKINUMAB
     Indication: Lupus nephritis
     Dosage: 300 MG
     Route: 058
     Dates: start: 20210224
  2. NADROPARIN CALCIUM [Concomitant]
     Active Substance: NADROPARIN CALCIUM
     Indication: General physical condition
     Dosage: UNK
     Route: 065
     Dates: start: 20201016
  3. BROMAZEPAM [Concomitant]
     Active Substance: BROMAZEPAM
     Indication: General physical condition
     Dosage: UNK
     Route: 065
     Dates: start: 202010
  4. METAMIZOLE [Concomitant]
     Active Substance: METAMIZOLE
     Indication: General physical condition
     Dosage: UNK
     Route: 065
     Dates: start: 20201030
  5. SULODEXIDE [Concomitant]
     Active Substance: SULODEXIDE
     Indication: Retinal vasculitis
     Dosage: UNK
     Route: 065
     Dates: start: 20210713
  6. PREDNISOLONE [Concomitant]
     Active Substance: PREDNISOLONE
     Indication: Lupus nephritis
     Dosage: UNK
     Route: 065
     Dates: start: 20211229, end: 20220103
  7. PREDNISOLONE [Concomitant]
     Active Substance: PREDNISOLONE
     Dosage: UNK
     Route: 065
     Dates: start: 20220104
  8. PYRIDOXINE [Concomitant]
     Active Substance: PYRIDOXINE
     Indication: Lupus nephritis
     Dosage: UNK
     Route: 065
     Dates: start: 202010
  9. PANTOPRAZOLE SODIUM [Concomitant]
     Active Substance: PANTOPRAZOLE SODIUM
     Indication: General physical condition
     Dosage: UNK
     Route: 065
     Dates: start: 20211229
  10. TIROSINT [Concomitant]
     Active Substance: LEVOTHYROXINE SODIUM
     Indication: Autoimmune thyroiditis
     Dosage: UNK
     Route: 065
     Dates: start: 201912
  11. METOPROLOL SUCCINATE [Concomitant]
     Active Substance: METOPROLOL SUCCINATE
     Indication: Hypertension
     Dosage: UNK
     Route: 065
     Dates: start: 202011
  12. CALCIUM CARBONATE [Concomitant]
     Active Substance: CALCIUM CARBONATE
     Indication: Prophylaxis
     Dosage: UNK
     Route: 065
     Dates: start: 20200903
  13. DIETARY SUPPLEMENT\HERBALS\MILK THISTLE [Concomitant]
     Active Substance: DIETARY SUPPLEMENT\HERBALS\MILK THISTLE
     Indication: General physical condition
     Dosage: UNK
     Route: 065
     Dates: start: 202010

REACTIONS (1)
  - Lupus nephritis [Not Recovered/Not Resolved]

NARRATIVE: CASE EVENT DATE: 20220110
